FAERS Safety Report 5951697-6 (Version None)
Quarter: 2008Q4

REPORT INFORMATION
  Report Type: 
  Country: None (occurrence: None)
  Receive Date: 20081113
  Receipt Date: 20081107
  Transmission Date: 20090506
  Serious: Yes (Hospitalization)
  Sender: FDA-Public Use
  Company Number: US-ASTRAZENECA-2008UW25084

PATIENT
  Sex: Male
  Weight: 72.6 kg

DRUGS (6)
  1. SEROQUEL [Suspect]
     Indication: MOOD SWINGS
     Dosage: 25 MG
     Route: 048
     Dates: start: 20080901, end: 20081101
  2. ARICEPT [Concomitant]
  3. NAMENDA [Concomitant]
  4. CITALOPRAM HYDROBROMIDE [Concomitant]
  5. ENALAPRIL MALEATE [Concomitant]
  6. MEDROXYPR [Concomitant]

REACTIONS (1)
  - MOOD SWINGS [None]
